FAERS Safety Report 8549422-8 (Version None)
Quarter: 2012Q3

REPORT INFORMATION
  Report Type: 
  Country: None (occurrence: None)
  Receive Date: 20120730
  Receipt Date: 20120724
  Transmission Date: 20120928
  Serious: Yes (Hospitalization)
  Sender: FDA-Public Use
  Company Number: IT-PFIZER INC-2012179553

PATIENT
  Age: 25 Year
  Sex: Male

DRUGS (3)
  1. RISPERDAL [Suspect]
     Dosage: 20 MG, SINGLE
     Route: 048
     Dates: start: 20120523, end: 20120523
  2. ZOLOFT [Suspect]
     Dosage: 10 TABLET
     Route: 048
     Dates: start: 20120523, end: 20120523
  3. LORAZEPAM [Suspect]
     Dosage: 5 TABLETS
     Route: 048
     Dates: start: 20120523, end: 20120523

REACTIONS (2)
  - INTENTIONAL OVERDOSE [None]
  - SELF INJURIOUS BEHAVIOUR [None]
